FAERS Safety Report 12619543 (Version 1)
Quarter: 2016Q3

REPORT INFORMATION
  Report Type: Spontaneous
  Country: FR (occurrence: FR)
  Receive Date: 20160803
  Receipt Date: 20160803
  Transmission Date: 20161109
  Serious: Yes (Other)
  Sender: FDA-Public Use
  Company Number: FR-JNJFOC-20160800682

PATIENT
  Age: 58 Year
  Sex: Female
  Weight: 66 kg

DRUGS (4)
  1. REMICADE [Suspect]
     Active Substance: INFLIXIMAB
     Indication: RHEUMATOID ARTHRITIS
     Route: 042
     Dates: start: 201303, end: 20160511
  2. METOJECT [Suspect]
     Active Substance: METHOTREXATE SODIUM
     Indication: PRODUCT USED FOR UNKNOWN INDICATION
     Dosage: 10 MG/0.2 ML SOLUTION FOR INJECTION IN PRE-FILLED SYRINGE
     Route: 065
     Dates: start: 20130614
  3. CORTISONE [Concomitant]
     Active Substance: CORTISONE\HYDROCORTISONE
     Indication: ARTHRALGIA
     Dosage: 5 TO 20 MG ON DEMAND DEPENDING OF THE INTENSITY OF PAIN
     Route: 065
  4. IMETH [Concomitant]
     Active Substance: METHOTREXATE SODIUM
     Dosage: SCORED TABLET
     Route: 065

REACTIONS (8)
  - Multiple fractures [Unknown]
  - Fall [Unknown]
  - Loss of consciousness [Unknown]
  - Vomiting [Recovered/Resolved]
  - Off label use [Unknown]
  - Paraplegia [Recovering/Resolving]
  - Ligament sprain [Unknown]
  - Product use issue [Unknown]

NARRATIVE: CASE EVENT DATE: 2013
